FAERS Safety Report 20544496 (Version 2)
Quarter: 2022Q1

REPORT INFORMATION
  Report Type: Spontaneous
  Country: SE (occurrence: SE)
  Receive Date: 20220303
  Receipt Date: 20220310
  Transmission Date: 20220423
  Serious: Yes (Hospitalization)
  Sender: FDA-Public Use
  Company Number: SE-CELGENE-SWE-20220204436

PATIENT
  Age: 62 Year
  Sex: Male
  Weight: 125.7 kg

DRUGS (15)
  1. EPCORITAMAB [Suspect]
     Active Substance: EPCORITAMAB
     Indication: Follicular lymphoma stage III
     Dosage: 48 MILLIGRAM
     Route: 058
     Dates: start: 20211221, end: 20220111
  2. EPCORITAMAB [Suspect]
     Active Substance: EPCORITAMAB
     Dosage: .8 MILLIGRAM
     Route: 058
     Dates: start: 20211214, end: 20211214
  3. EPCORITAMAB [Suspect]
     Active Substance: EPCORITAMAB
     Dosage: .16 MILLIGRAM
     Route: 058
     Dates: start: 20211123, end: 20211123
  4. EPCORITAMAB [Suspect]
     Active Substance: EPCORITAMAB
     Dosage: .16 MILLIGRAM
     Route: 058
     Dates: start: 20211207, end: 20211207
  5. LENALIDOMIDE [Suspect]
     Active Substance: LENALIDOMIDE
     Indication: Follicular lymphoma stage III
     Dosage: 20 MILLIGRAM
     Route: 048
     Dates: start: 20211123, end: 20211213
  6. LENALIDOMIDE [Suspect]
     Active Substance: LENALIDOMIDE
     Dosage: 20 MILLIGRAM
     Route: 048
     Dates: start: 20220104, end: 20220111
  7. LENALIDOMIDE [Suspect]
     Active Substance: LENALIDOMIDE
     Dosage: 20 MILLIGRAM
     Route: 048
     Dates: start: 20220114
  8. RITUXIMAB [Suspect]
     Active Substance: RITUXIMAB
     Indication: Follicular lymphoma stage III
     Dosage: 375 MILLIGRAM/SQ. METER
     Route: 041
     Dates: start: 20211207, end: 20211221
  9. RITUXIMAB [Suspect]
     Active Substance: RITUXIMAB
     Dosage: 375 MILLIGRAM/SQ. METER
     Route: 041
     Dates: start: 20220104, end: 20220104
  10. RITUXIMAB [Suspect]
     Active Substance: RITUXIMAB
     Dosage: 375 MILLIGRAM/SQ. METER
     Route: 041
     Dates: start: 20211123, end: 20211123
  11. PIPERACILLIN [Concomitant]
     Active Substance: PIPERACILLIN
     Indication: Product used for unknown indication
     Route: 065
     Dates: start: 20220111, end: 20220112
  12. OXYGEN [Concomitant]
     Active Substance: OXYGEN
     Indication: Product used for unknown indication
     Route: 065
     Dates: start: 20220117, end: 20220120
  13. TRIMETHOPRIM [Concomitant]
     Active Substance: TRIMETHOPRIM
     Indication: Pneumocystis jirovecii infection
     Dosage: 160 MILLIGRAM
     Route: 048
     Dates: start: 20220117
  14. CALCIUM CHLORIDE [Concomitant]
     Active Substance: CALCIUM CHLORIDE
     Indication: Product used for unknown indication
     Route: 065
     Dates: start: 20220126, end: 20220127
  15. SULFAMETHOXAZOLE [Concomitant]
     Active Substance: SULFAMETHOXAZOLE
     Indication: Pneumocystis jirovecii infection
     Dosage: 800 MILLIGRAM
     Route: 048
     Dates: start: 20220117

REACTIONS (1)
  - Dehydration [Not Recovered/Not Resolved]

NARRATIVE: CASE EVENT DATE: 20220202
